FAERS Safety Report 7049284-4 (Version None)
Quarter: 2010Q4

REPORT INFORMATION
  Report Type: 
  Country: None (occurrence: None)
  Receive Date: 20101018
  Receipt Date: 20101007
  Transmission Date: 20110411
  Serious: Yes (Hospitalization)
  Sender: FDA-Public Use
  Company Number: JP-JNJFOC-20100606177

PATIENT
  Sex: Female
  Weight: 47 kg

DRUGS (4)
  1. DOXORUBICIN HYDROCHLORIDE [Suspect]
     Indication: OVARIAN CANCER RECURRENT
     Dosage: COURSE 1
     Route: 042
  2. OXYCONTIN [Concomitant]
     Indication: CANCER PAIN
     Route: 048
  3. KENTAN [Concomitant]
     Indication: CANCER PAIN
     Route: 048
  4. BLESIN [Concomitant]
     Indication: CANCER PAIN
     Route: 048

REACTIONS (4)
  - DYSPHAGIA [None]
  - EATING DISORDER [None]
  - NAUSEA [None]
  - VOMITING [None]
